FAERS Safety Report 10353569 (Version 6)
Quarter: 2016Q1

REPORT INFORMATION
  Report Type: Spontaneous
  Country: US (occurrence: US)
  Receive Date: 20140731
  Receipt Date: 20160330
  Transmission Date: 20160525
  Serious: Yes (Hospitalization, Other)
  Sender: FDA-Public Use
  Company Number: US-PFIZER INC-2014194847

PATIENT
  Age: 68 Year
  Sex: Female
  Weight: 75.28 kg

DRUGS (64)
  1. METHYCLOTHIAZIDE. [Concomitant]
     Active Substance: METHYCLOTHIAZIDE
     Dosage: 5 MG, AS NEEDED
  2. COUMADINE [Concomitant]
     Active Substance: WARFARIN SODIUM
     Dosage: 2.5 MG, 1X/DAY
     Dates: start: 20141002
  3. ZOMETA [Concomitant]
     Active Substance: ZOLEDRONIC ACID
     Dosage: 3 MG, 1X/DAY
  4. SUTENT [Suspect]
     Active Substance: SUNITINIB MALATE
     Indication: METASTATIC RENAL CELL CARCINOMA
     Dosage: 50 MG, CYCLIC DAILY (4 WEEKS WITH A 2 WEEK REST)
     Route: 048
     Dates: start: 20140520, end: 20140604
  5. VITAMIN B12 [Concomitant]
     Active Substance: CYANOCOBALAMIN
     Dosage: 1000 UG, DAILY (1 P.O.Q.DAY)
     Route: 048
  6. GABAPENTIN. [Concomitant]
     Active Substance: GABAPENTIN
     Dosage: 100 MG, 3X/DAY
     Route: 048
  7. WARFARIN [Concomitant]
     Active Substance: WARFARIN
     Dosage: 1 MG, UNK (3 TABS DAILY AS DIRECTED)
  8. PREDNISONE. [Concomitant]
     Active Substance: PREDNISONE
     Dosage: 20 MG, DAILY(TAKE 2 TABLETS DAY
  9. HYDROCHLOROTHIAZIDE. [Concomitant]
     Active Substance: HYDROCHLOROTHIAZIDE
     Dosage: 12.5 MG, UNK
  10. ACETAMINOPHEN PM [Concomitant]
     Active Substance: ACETAMINOPHEN\DIPHENHYDRAMINE HYDROCHLORIDE
     Dosage: UNK
  11. STOOL SOFTENER [Concomitant]
     Active Substance: DOCUSATE CALCIUM
     Dosage: 100 G, 3X/DAY
     Route: 048
  12. SUTENT [Suspect]
     Active Substance: SUNITINIB MALATE
     Dosage: UNK
     Dates: start: 20140728
  13. COLACE [Concomitant]
     Active Substance: DOCUSATE SODIUM
     Dosage: 100 MG, THRICE DAILY AS NEEDED
  14. VITAMIN E [Concomitant]
     Active Substance: .ALPHA.-TOCOPHEROL
     Dosage: 400 IU, DAILY (1 P.O.Q.DAY)
     Route: 048
  15. WARFARIN [Concomitant]
     Active Substance: WARFARIN
     Dosage: 6 MG, UNK
  16. PROAIR HFA [Concomitant]
     Active Substance: ALBUTEROL SULFATE
     Dosage: 90 MCG/ACTUATION
  17. PROCRIT [Concomitant]
     Active Substance: ERYTHROPOIETIN
     Dosage: UNK
  18. SUTENT [Suspect]
     Active Substance: SUNITINIB MALATE
     Dosage: 37.5 MG, DAILY
     Dates: start: 20150417
  19. OXYCODONE [Concomitant]
     Active Substance: OXYCODONE
     Dosage: 30 MG, UNK
  20. OXYCODONE [Concomitant]
     Active Substance: OXYCODONE
     Dosage: 10 MG, AS NEEDED (1-4 Q 4H)
     Dates: start: 20140509
  21. OXYCODONE [Concomitant]
     Active Substance: OXYCODONE
     Dosage: 20 MG, UNK
  22. MIRALAX [Concomitant]
     Active Substance: POLYETHYLENE GLYCOL 3350
     Dosage: 17 G, EVERY OTHER DAY
     Route: 048
  23. SENOKOT [Concomitant]
     Active Substance: SENNOSIDES
     Dosage: 8.6 MG, UNK (2 TABS AT BEDTIME (HS))
  24. COUMADINE [Concomitant]
     Active Substance: WARFARIN SODIUM
     Dosage: 2 MG, 2X/WEEK (2.5 MG THE REST OF THE WEEK. RETURN IN 2 WEEKS.)
  25. FENTANYL. [Concomitant]
     Active Substance: FENTANYL
     Dosage: 100 UG, UNK (1 PATCH ON SKIN CHANGED Q 72 HOURS )
  26. FENTANYL. [Concomitant]
     Active Substance: FENTANYL
     Dosage: 100 UG, PER HOUR
  27. FENTANYL. [Concomitant]
     Active Substance: FENTANYL
     Dosage: 25MCG/HR CHANGED PER 72 HOURS
     Dates: start: 20140509
  28. ATENOLOL. [Concomitant]
     Active Substance: ATENOLOL
     Dosage: 50 MG, DAILY(1 P.O.Q.DAY)
     Route: 048
  29. ALBUTEROL. [Concomitant]
     Active Substance: ALBUTEROL
     Indication: DYSPNOEA
     Dosage: 2 PUFFS EVERY  4 HOURS AS NEEDED
  30. LOSARTAN POTASSIUM W/HYDROCHLOROTHIAZIDE [Concomitant]
     Active Substance: HYDROCHLOROTHIAZIDE\LOSARTAN POTASSIUM
     Dosage: 1 DF, DAILY (100 MG /12.5 MG)
  31. MIRALAX [Concomitant]
     Active Substance: POLYETHYLENE GLYCOL 3350
     Dosage: 17 G, DAILY(1 P.O.Q.DAY)
     Route: 048
  32. JANTOVEN [Concomitant]
     Active Substance: WARFARIN SODIUM
     Dosage: 1 MG, UNK
  33. SUNITINIB [Concomitant]
     Active Substance: SUNITINIB
     Dosage: UNK
  34. FENTANYL. [Concomitant]
     Active Substance: FENTANYL
     Indication: PAIN
     Dosage: 50 UG,  Q. 72 HOURS
     Route: 062
  35. OXYCODONE [Concomitant]
     Active Substance: OXYCODONE
     Dosage: 10-20 MG EVERY 6 HOURS AS NEEDED
  36. OXYCODONE [Concomitant]
     Active Substance: OXYCODONE
     Dosage: 30 MG, EVERY 4 HRS (1 TAB Q 4HR PRN-REEVAL )
  37. OXYCODONE [Concomitant]
     Active Substance: OXYCODONE
     Dosage: 100 MG, AS NEEDED (2-3 TABS Q 4HR PRN-PAIN )
  38. OXYCODONE [Concomitant]
     Active Substance: OXYCODONE
     Dosage: 10 MG, AS NEEDED (2-3 TABLETS Q 4H)
  39. OMEPRAZOLE. [Concomitant]
     Active Substance: OMEPRAZOLE
     Dosage: 20 MG, 2X/DAY
  40. PRILOSEC [Concomitant]
     Active Substance: OMEPRAZOLE MAGNESIUM
     Dosage: 10 MG, DAILY(1 P.O.Q.DAY)
     Route: 048
  41. WARFARIN [Concomitant]
     Active Substance: WARFARIN
     Dosage: 1.5 MG, DAILY
     Dates: start: 20140912
  42. VITAMIN D3 [Concomitant]
     Active Substance: CHOLECALCIFEROL
     Dosage: 1000 UG, DAILY (1 P.O.Q.DAY)
     Route: 048
  43. OXYCODONE-ACETAMINOPHEN [Concomitant]
     Active Substance: ACETAMINOPHEN\OXYCODONE HYDROCHLORIDE
     Dosage: UNK  (ACETAMINOPHEN 325MG AND OXYCODONE 5MG AS NEEDED)
  44. STOOL SOFTENER [Concomitant]
     Active Substance: DOCUSATE CALCIUM
     Dosage: 100 MG, UNK
  45. REGLAN [Concomitant]
     Active Substance: METOCLOPRAMIDE HYDROCHLORIDE
     Dosage: 10 MG, UNK
  46. ZOLEDRONIC ACID [Concomitant]
     Active Substance: ZOLEDRONIC ACID
     Dosage: 3.3 UNK, UNK
  47. SUTENT [Suspect]
     Active Substance: SUNITINIB MALATE
     Dosage: 37.5 MG, CYCLIC DAILY (4 WEEKS, FOLLOWED BY A 2-WEEK REST PERIOD)
     Route: 048
     Dates: start: 20140615
  48. LOSARTAN. [Concomitant]
     Active Substance: LOSARTAN
     Dosage: 100 MG, DAILY (1 P.O.Q.DAY)
     Route: 048
  49. VITAMIN D [Concomitant]
     Active Substance: CHOLECALCIFEROL
     Dosage: 1,000 UNIT CAPSULE
  50. WARFARIN [Concomitant]
     Active Substance: WARFARIN
     Dosage: 3 MG, DAILY
     Dates: start: 20140829
  51. ZOLEDRONIC ACID [Concomitant]
     Active Substance: ZOLEDRONIC ACID
     Dosage: 3.5 MG, UNK
  52. ZOLEDRONIC ACID [Concomitant]
     Active Substance: ZOLEDRONIC ACID
     Dosage: 4 MG, UNK
  53. FENTANYL. [Concomitant]
     Active Substance: FENTANYL
     Dosage: 75 UG, DAILY
  54. FENTANYL. [Concomitant]
     Active Substance: FENTANYL
     Dosage: 50 UG, PER HOUR
  55. OXYCODONE [Concomitant]
     Active Substance: OXYCODONE
     Indication: PAIN
     Dosage: 10 MG, EVERY 4 HRS
  56. ASPIRIN. [Concomitant]
     Active Substance: ASPIRIN
     Dosage: 81 MG, DAILY
  57. ASPIRIN. [Concomitant]
     Active Substance: ASPIRIN
     Dosage: 81 MG, DAILY (1 P.O.Q.DAY)
     Route: 048
  58. ALBUTEROL. [Concomitant]
     Active Substance: ALBUTEROL
     Dosage: 90 UG, AS NEEDED
  59. CHOLECALCIFEROL [Concomitant]
     Active Substance: CHOLECALCIFEROL
     Dosage: 1 DF, DAILY
  60. LOSARTAN POTASSIUM W/HYDROCHLOROTHIAZIDE [Concomitant]
     Active Substance: HYDROCHLOROTHIAZIDE\LOSARTAN POTASSIUM
     Dosage: HYDROCHLOROTHIAZIDE 12.5 MG, LOSARTAN POTASSIUM 100 MG
  61. LEVOTHYROXINE. [Concomitant]
     Active Substance: LEVOTHYROXINE
     Dosage: 75 UG, DAILY (1 P.O.Q.DAY)
     Route: 048
  62. MEGACE [Concomitant]
     Active Substance: MEGESTROL ACETATE
     Dosage: 800 MG, DAILY
  63. MEGACE [Concomitant]
     Active Substance: MEGESTROL ACETATE
     Dosage: 20 ML, DAILY
  64. HYDROCHLOROTHIAZIDE. [Concomitant]
     Active Substance: HYDROCHLOROTHIAZIDE
     Dosage: 25 MG, UNK

REACTIONS (23)
  - Diarrhoea [Recovering/Resolving]
  - Vomiting [Recovering/Resolving]
  - Metastatic renal cell carcinoma [Recovering/Resolving]
  - Pain in extremity [Unknown]
  - Fatigue [Recovering/Resolving]
  - Weight decreased [Unknown]
  - Seasonal allergy [Unknown]
  - Nausea [Recovering/Resolving]
  - Pain [Recovering/Resolving]
  - Scintillating scotoma [Unknown]
  - Chronic kidney disease [Unknown]
  - Deep vein thrombosis [Unknown]
  - Weight increased [Unknown]
  - Cough [Unknown]
  - Arthralgia [Unknown]
  - Anaemia [Unknown]
  - Increased appetite [Recovered/Resolved]
  - Headache [Unknown]
  - Back pain [Unknown]
  - Dyspepsia [Unknown]
  - Disease progression [Recovering/Resolving]
  - Decreased appetite [Recovering/Resolving]
  - Muscle spasms [Unknown]

NARRATIVE: CASE EVENT DATE: 2014
